FAERS Safety Report 13025408 (Version 1)
Quarter: 2016Q4

REPORT INFORMATION
  Report Type: Other
  Country: DE (occurrence: DE)
  Receive Date: 20161214
  Receipt Date: 20161214
  Transmission Date: 20170207
  Serious: No
  Sender: FDA-Public Use
  Company Number: DE-GAVIS PHARMACEUTICALS, LLC-2016-04459

PATIENT
  Age: 64 Year
  Sex: Female

DRUGS (2)
  1. FLUOCINOLONE ACETONIDE. [Suspect]
     Active Substance: FLUOCINOLONE ACETONIDE
     Dosage: 190-MICROG WAS IMPLANT IN THE LEFT EYE
     Route: 042
     Dates: start: 20140128
  2. FLUOCINOLONE ACETONIDE. [Suspect]
     Active Substance: FLUOCINOLONE ACETONIDE
     Indication: DIABETIC RETINAL OEDEMA
     Dosage: 190-MICROG WAS IMPLANT IN THE RIGHT EYE
     Route: 031
     Dates: start: 20140115

REACTIONS (1)
  - Intraocular pressure increased [Recovering/Resolving]
